FAERS Safety Report 13807523 (Version 9)
Quarter: 2020Q4

REPORT INFORMATION
  Report Type: Spontaneous
  Country: US (occurrence: US)
  Receive Date: 20170728
  Receipt Date: 20201216
  Transmission Date: 20210113
  Serious: Yes (Hospitalization, Other)
  Sender: FDA-Public Use
  Company Number: US-PFIZER INC-2017324503

PATIENT
  Age: 61 Year
  Sex: Female
  Weight: 45.35 kg

DRUGS (11)
  1. PERCOCET [OXYCODONE HYDROCHLORIDE;OXYCODONE TEREPHTHALATE;PARACETAMOL] [Concomitant]
     Active Substance: ACETAMINOPHEN\OXYCODONE HYDROCHLORIDE\OXYCODONE TEREPHTHALATE
     Dosage: 5 MG, AS NEEDED
  2. XELJANZ XR [Suspect]
     Active Substance: TOFACITINIB CITRATE
     Dosage: 11 MG, 1X/DAY
     Route: 048
     Dates: start: 202007
  3. FOSAMAX [Concomitant]
     Active Substance: ALENDRONATE SODIUM
     Dosage: UNK (ON FRIDAY, ONCE A WEEK)
  4. NEURONTIN [Concomitant]
     Active Substance: GABAPENTIN
     Dosage: UNK, DAILY
  5. ALPRAZOLAM. [Concomitant]
     Active Substance: ALPRAZOLAM
     Indication: MUSCLE SPASMS
     Dosage: 0.25 MG, 3X/DAY
  6. PREDNISONE. [Concomitant]
     Active Substance: PREDNISONE
     Dosage: UNK, DAILY
  7. LEVOTHYROXINE. [Concomitant]
     Active Substance: LEVOTHYROXINE
     Dosage: 50 UG, DAILY[50MCG DAILY]
  8. XELJANZ XR [Suspect]
     Active Substance: TOFACITINIB CITRATE
     Indication: RHEUMATOID ARTHRITIS
     Dosage: 11 MG, UNK
  9. FOLIC ACID. [Concomitant]
     Active Substance: FOLIC ACID
     Dosage: UNK, DAILY
  10. XELJANZ XR [Suspect]
     Active Substance: TOFACITINIB CITRATE
     Dosage: 11 MG, 1X/DAY, (SMALL MAUVE TABLET)
     Route: 048
     Dates: start: 201606
  11. METHOTREXATE. [Concomitant]
     Active Substance: METHOTREXATE
     Dosage: 25 MG, WEEKLY (25MG INJECTION ONCE A WEEK)

REACTIONS (18)
  - Thoracic vertebral fracture [Unknown]
  - Condition aggravated [Unknown]
  - Pyrexia [Unknown]
  - Disease recurrence [Unknown]
  - Nasopharyngitis [Unknown]
  - Fall [Unknown]
  - Osteomyelitis [Unknown]
  - Sepsis [Unknown]
  - Pain [Unknown]
  - Unresponsive to stimuli [Unknown]
  - Pneumonia aspiration [Unknown]
  - Myelitis [Unknown]
  - Decreased appetite [Unknown]
  - Pneumonia [Unknown]
  - Infection [Unknown]
  - Heart rate decreased [Unknown]
  - Radicular pain [Unknown]
  - Anaemia [Unknown]

NARRATIVE: CASE EVENT DATE: 201911
